FAERS Safety Report 8087297-4 (Version None)
Quarter: 2012Q1

REPORT INFORMATION
  Report Type: 
  Country: None (occurrence: None)
  Receive Date: 20120128
  Receipt Date: 20110516
  Transmission Date: 20120608
  Serious: No
  Sender: FDA-Public Use
  Company Number: US-ABBOTT-11P-163-0725966-00

PATIENT
  Sex: Female
  Weight: 48.578 kg

DRUGS (7)
  1. CITRACAL [Concomitant]
     Indication: PRODUCT USED FOR UNKNOWN INDICATION
  2. ASPIRIN [Concomitant]
     Indication: ATRIAL FIBRILLATION
  3. HUMIRA [Suspect]
     Indication: RHEUMATOID ARTHRITIS
     Dates: start: 20080101
  4. OXYBUTYNIN [Concomitant]
     Indication: POLLAKIURIA
  5. ENBREL [Suspect]
     Indication: RHEUMATOID ARTHRITIS
     Dates: end: 20080101
  6. RYTHMOL [Concomitant]
     Indication: ATRIAL FIBRILLATION
  7. HYDROXYCHLOROQUINE SULFATE [Concomitant]
     Indication: RHEUMATOID ARTHRITIS

REACTIONS (1)
  - CONTUSION [None]
